FAERS Safety Report 16625008 (Version 1)
Quarter: 2019Q3

REPORT INFORMATION
  Report Type: Spontaneous
  Country: US (occurrence: US)
  Receive Date: 20190611
  Receipt Date: 20190611
  Transmission Date: 20191004
  Serious: Yes (Other)
  Sender: FDA-Public Use
  Company Number: None

PATIENT
  Age: 33 Year
  Sex: Male

DRUGS (1)
  1. HUMIRA [Suspect]
     Active Substance: ADALIMUMAB
     Dosage: DOSE 40 MG /0.8 ML
     Route: 058
     Dates: start: 20171216

REACTIONS (2)
  - Colitis [None]
  - Procedural complication [None]

NARRATIVE: CASE EVENT DATE: 20190426
